FAERS Safety Report 22165459 (Version 3)
Quarter: 2023Q2

REPORT INFORMATION
  Report Type: Spontaneous
  Country: CN (occurrence: CN)
  Receive Date: 20230403
  Receipt Date: 20230416
  Transmission Date: 20230722
  Serious: Yes (Other)
  Sender: FDA-Public Use
  Company Number: CN-002147023-NVSC2023CN061220

PATIENT
  Sex: Female

DRUGS (10)
  1. ENTRESTO [Suspect]
     Active Substance: SACUBITRIL\VALSARTAN
     Indication: Cardiac failure
     Dosage: 0.25 DOSAGE FORM, QD (100 MG, 1/4 TABLETS A DAY))
     Route: 048
     Dates: start: 2022
  2. ENTRESTO [Suspect]
     Active Substance: SACUBITRIL\VALSARTAN
     Dosage: 1- 3MG/TIME, QD
     Route: 048
     Dates: start: 20230308, end: 20230311
  3. ENTRESTO [Suspect]
     Active Substance: SACUBITRIL\VALSARTAN
     Dosage: 1-3MG, QD
     Route: 048
     Dates: start: 20230313, end: 20230317
  4. ENTRESTO [Suspect]
     Active Substance: SACUBITRIL\VALSARTAN
     Dosage: 5-6MG, QD
     Route: 048
     Dates: start: 20230318, end: 20230322
  5. ENTRESTO [Suspect]
     Active Substance: SACUBITRIL\VALSARTAN
     Dosage: QD, (5-6MG PER DAY)
     Route: 048
     Dates: start: 20230324, end: 20230325
  6. FUROSEMIDE [Concomitant]
     Active Substance: FUROSEMIDE
     Indication: Cardiac failure
     Dosage: 3 TABLETS PER DAY/2 TABLETS PER DAY
     Route: 048
  7. FUROSEMIDE [Concomitant]
     Active Substance: FUROSEMIDE
     Indication: Diuretic therapy
  8. SPIRONOLACTONE [Concomitant]
     Active Substance: SPIRONOLACTONE
     Indication: Cardiac failure
     Dosage: 2 TABLETS PER DAY/1 TABLETS PER DAY
     Route: 048
  9. SPIRONOLACTONE [Concomitant]
     Active Substance: SPIRONOLACTONE
     Indication: Diuretic therapy
  10. SODIUM CHLORIDE [Concomitant]
     Active Substance: SODIUM CHLORIDE
     Indication: Product used for unknown indication
     Dosage: UNK (SUSTAINED RELEASE)
     Route: 065
     Dates: start: 20230315

REACTIONS (9)
  - Blood pressure decreased [Recovered/Resolved]
  - Anuria [Recovered/Resolved]
  - Blood pressure systolic abnormal [Unknown]
  - Oedema peripheral [Recovering/Resolving]
  - Abdominal distension [Unknown]
  - Hypotension [Unknown]
  - Wrong technique in product usage process [Unknown]
  - Product use issue [Unknown]
  - Therapeutic product effect incomplete [Unknown]

NARRATIVE: CASE EVENT DATE: 20220101
